FAERS Safety Report 7942546-5 (Version None)
Quarter: 2011Q4

REPORT INFORMATION
  Report Type: 
  Country: None (occurrence: None)
  Receive Date: 20111128
  Receipt Date: 20111117
  Transmission Date: 20120403
  Serious: Yes (Other)
  Sender: FDA-Public Use
  Company Number: FR-VIIV HEALTHCARE LIMITED-B0763764A

PATIENT
  Sex: Male
  Weight: 90 kg

DRUGS (1)
  1. COMBIVIR [Suspect]
     Indication: HIV INFECTION
     Route: 048

REACTIONS (2)
  - ULCER [None]
  - ANAEMIA [None]
